FAERS Safety Report 14079781 (Version 2)
Quarter: 2017Q4

REPORT INFORMATION
  Report Type: Spontaneous
  Country: NL (occurrence: NL)
  Receive Date: 20171012
  Receipt Date: 20171013
  Transmission Date: 20180321
  Serious: Yes (Life-Threatening)
  Sender: FDA-Public Use
  Company Number: NL-JNJFOC-20171009142

PATIENT
  Age: 75 Year
  Sex: Male
  Weight: 73 kg

DRUGS (11)
  1. PARACETAMOL [Concomitant]
     Active Substance: ACETAMINOPHEN
     Dosage: 500MG IF NECESSARY UP TO 1000MG/4X/DAY
     Route: 048
  2. IMBRUVICA [Suspect]
     Active Substance: IBRUTINIB
     Indication: MYELODYSPLASTIC SYNDROME
     Route: 048
     Dates: start: 20170807
  3. TRIAMTEREEN [Concomitant]
     Active Substance: TRIAMTERENE
     Dosage: 50 MG
     Route: 048
  4. COTRIMOXAZOL [Concomitant]
     Active Substance: SULFAMETHOXAZOLE\TRIMETHOPRIM
     Dosage: 960 TABLET 160/800 MG
     Route: 048
  5. MOVICOLON [Concomitant]
     Active Substance: POLYETHYLENE GLYCOL 3350\POTASSIUM CHLORIDE\SODIUM BICARBONATE\SODIUM CHLORIDE
     Dosage: 1 PIECE
     Route: 048
  6. COLISTIN SULPHATE [Concomitant]
     Dosage: 3 MAAL DAAGSX200 MG
     Route: 048
  7. NORTRILEN [Concomitant]
     Active Substance: NORTRIPTYLINE
     Route: 048
  8. LOSARTAN. [Concomitant]
     Active Substance: LOSARTAN
     Route: 048
  9. DECITABINE. [Concomitant]
     Active Substance: DECITABINE
     Route: 042
     Dates: start: 20170807, end: 20170817
  10. POVIDON [Concomitant]
     Dosage: 50 MG/ML 10ML FOLLOWING AGREEMENT 2.5 MG
     Route: 047
  11. HYDROCHLOORTHIAZIDE [Concomitant]
     Active Substance: HYDROCHLOROTHIAZIDE
     Route: 048

REACTIONS (6)
  - Hypopituitarism [Not Recovered/Not Resolved]
  - Off label use [Unknown]
  - Adrenocortical insufficiency acute [Not Recovered/Not Resolved]
  - Diabetes insipidus [Not Recovered/Not Resolved]
  - Febrile neutropenia [Not Recovered/Not Resolved]
  - Product use in unapproved indication [Unknown]

NARRATIVE: CASE EVENT DATE: 20170829
